FAERS Safety Report 4998540-X (Version None)
Quarter: 2006Q2

REPORT INFORMATION
  Report Type: 
  Country: None (occurrence: None)
  Receive Date: 20060508
  Receipt Date: 20060425
  Transmission Date: 20061013
  Serious: Yes (Hospitalization)
  Sender: FDA-Public Use
  Company Number: 2005140853

PATIENT
  Age: 63 Year
  Sex: Male
  Weight: 49 kg

DRUGS (6)
  1. DOXORUBICIN HCL [Suspect]
     Indication: ILL-DEFINED DISORDER
     Dosage: 79 MG (1 IN 1 D), INTRAVENOUS
     Route: 042
     Dates: start: 20050714, end: 20050714
  2. IFOSFAMIDE [Suspect]
     Indication: ILL-DEFINED DISORDER
     Dosage: 3100 MG (1 IN 1 D), INTRAVENOUS
     Route: 042
     Dates: start: 20050713, end: 20050714
  3. VEPESID [Suspect]
     Indication: ILL-DEFINED DISORDER
     Dosage: 158 MG (1 IN 1 D), INTRAVENOUS
     Route: 042
     Dates: start: 20050601, end: 20050715
  4. CREON [Concomitant]
  5. NEXIUM [Concomitant]
  6. VERAPAMIL HCL [Concomitant]

REACTIONS (4)
  - ASTHENIA [None]
  - CARDIAC FLUTTER [None]
  - FEBRILE BONE MARROW APLASIA [None]
  - HYPERTHERMIA [None]
